FAERS Safety Report 25606207 (Version 2)
Quarter: 2025Q4

REPORT INFORMATION
  Report Type: Spontaneous
  Country: US (occurrence: US)
  Receive Date: 20250725
  Receipt Date: 20251016
  Transmission Date: 20260118
  Serious: No
  Sender: PFIZER
  Company Number: US-PFIZER INC-PV202500088514

PATIENT
  Age: 69 Year
  Sex: Female

DRUGS (3)
  1. XELJANZ [Suspect]
     Active Substance: TOFACITINIB CITRATE
     Indication: Rheumatoid arthritis
     Dosage: 5 MG, 2X/DAY
     Route: 048
     Dates: start: 202504
  2. XELJANZ [Suspect]
     Active Substance: TOFACITINIB CITRATE
     Dosage: 5 MG, 2X/DAY
     Route: 048
     Dates: start: 202504, end: 202509
  3. TERIPARATIDE [Concomitant]
     Active Substance: TERIPARATIDE
     Dosage: UNK

REACTIONS (6)
  - Weight increased [Recovered/Resolved]
  - Change of bowel habit [Unknown]
  - Nasal congestion [Recovered/Resolved]
  - Ear congestion [Recovered/Resolved]
  - Headache [Recovered/Resolved]
  - Constipation [Recovered/Resolved]

NARRATIVE: CASE EVENT DATE: 20250101
